FAERS Safety Report 7800404-0 (Version None)
Quarter: 2011Q4

REPORT INFORMATION
  Report Type: 
  Country: None (occurrence: None)
  Receive Date: 20111006
  Receipt Date: 20111004
  Transmission Date: 20120403
  Serious: Yes (Hospitalization, Other)
  Sender: FDA-Public Use
  Company Number: DE-BAYER-2011-045641

PATIENT
  Age: 30 Year
  Sex: Male

DRUGS (2)
  1. INTERFERON BETA-1B [Suspect]
     Indication: MULTIPLE SCLEROSIS
     Dosage: UNK
     Route: 058
     Dates: start: 20100201, end: 20100608
  2. CARBAMAZEPINE [Concomitant]
     Dosage: DAILY DOSE 600 MG
     Route: 048
     Dates: start: 20100801, end: 20110609

REACTIONS (1)
  - VASCULITIS NECROTISING [None]
